FAERS Safety Report 7258921-0 (Version None)
Quarter: 2011Q1

REPORT INFORMATION
  Report Type: 
  Country: None (occurrence: None)
  Receive Date: 20110129
  Receipt Date: 20100614
  Transmission Date: 20110831
  Serious: No
  Sender: FDA-Public Use
  Company Number: US-ABBOTT-10P-163-0651240-00

PATIENT
  Age: 34 Year
  Sex: Female

DRUGS (9)
  1. HUMIRA [Suspect]
     Indication: RHEUMATOID ARTHRITIS
     Dates: start: 20100528
  2. PAXIL CR [Concomitant]
     Indication: DEPRESSION
  3. AZULFIDINE [Concomitant]
     Indication: COLITIS
  4. METFORMIN [Concomitant]
     Indication: DIABETES MELLITUS
  5. PLAQUENIL [Concomitant]
     Indication: RHEUMATOID ARTHRITIS
  6. EXCEDRIN (MIGRAINE) [Concomitant]
     Indication: MIGRAINE
  7. LEVOTHYROXINE SODIUM [Concomitant]
     Indication: HYPOTHYROIDISM
  8. AZULFIDINE [Concomitant]
     Indication: RHEUMATOID ARTHRITIS
  9. ZIAC [Concomitant]
     Indication: HYPERTENSION

REACTIONS (1)
  - MIGRAINE [None]
